FAERS Safety Report 6613582-6 (Version None)
Quarter: 2010Q1

REPORT INFORMATION
  Report Type: 
  Country: None (occurrence: None)
  Receive Date: 20100224
  Receipt Date: 20090331
  Transmission Date: 20100710
  Serious: Yes (Hospitalization)
  Sender: FDA-Public Use
  Company Number: WAES 0904USA01243

PATIENT
  Sex: Male

DRUGS (4)
  1. ZOCOR [Suspect]
     Dosage: PO
     Route: 048
     Dates: end: 20030709
  2. LIPITOR [Suspect]
     Dates: end: 20030709
  3. TOPAMAX [Suspect]
     Dates: start: 20030703, end: 20030709
  4. DILANTIN [Concomitant]

REACTIONS (1)
  - MYALGIA [None]
